FAERS Safety Report 8496869-4 (Version None)
Quarter: 2012Q3

REPORT INFORMATION
  Report Type: 
  Country: None (occurrence: None)
  Receive Date: 20120709
  Receipt Date: 20120628
  Transmission Date: 20120928
  Serious: Yes (Hospitalization, Other)
  Sender: FDA-Public Use
  Company Number: US-ELI_LILLY_AND_COMPANY-US201207000781

PATIENT
  Sex: Male

DRUGS (10)
  1. PLAVIX [Concomitant]
     Indication: ANTICOAGULANT THERAPY
     Dosage: 75 MG, QD
  2. FORTEO [Suspect]
     Indication: OSTEOPOROSIS
     Dosage: 20 UG, QD
  3. METOPROLOL [Concomitant]
     Indication: BLOOD PRESSURE
     Dosage: 50 MG, QD
  4. ASPIRIN [Concomitant]
     Dosage: 81 MG, QD
  5. SYNTHROID [Concomitant]
     Indication: THYROID DISORDER
     Dosage: 0.125 MG, QD
  6. HYDROCHLOROTHIAZIDE [Concomitant]
     Indication: FLUID RETENTION
     Dosage: 12.5 MG, QD
  7. FENOFIBRATE [Concomitant]
     Indication: BLOOD CHOLESTEROL
     Dosage: 160 MG, EACH EVENING
  8. LISINOPRIL [Concomitant]
     Indication: BLOOD PRESSURE
     Dosage: 20 MG, QD
  9. CRESTOR [Concomitant]
     Indication: BLOOD CHOLESTEROL
     Dosage: 10 MG, QD
  10. GLYBURIDE AND METFORMIN HYDROCHLORIDE [Concomitant]
     Indication: BLOOD GLUCOSE ABNORMAL
     Dosage: 500 MG, QD

REACTIONS (3)
  - LUNG CARCINOMA CELL TYPE UNSPECIFIED STAGE IV [None]
  - PNEUMONIA [None]
  - SKIN CANCER [None]
